FAERS Safety Report 14268600 (Version 2)
Quarter: 2017Q4

REPORT INFORMATION
  Report Type: Report from Study
  Country: CA (occurrence: CA)
  Receive Date: 20171211
  Receipt Date: 20171228
  Transmission Date: 20180321
  Serious: Yes (Other)
  Sender: FDA-Public Use
  Company Number: CA-JNJFOC-20171136705

PATIENT
  Age: 77 Year
  Sex: Female
  Weight: 53 kg

DRUGS (14)
  1. CALCITE D [Concomitant]
     Active Substance: CALCIUM CARBONATE
     Route: 065
  2. PREGABALIN. [Concomitant]
     Active Substance: PREGABALIN
     Route: 065
  3. AAS [Concomitant]
     Active Substance: ASPIRIN
     Route: 065
  4. LORAZEPAM. [Concomitant]
     Active Substance: LORAZEPAM
     Route: 065
  5. ACETAMINOPHEN. [Concomitant]
     Active Substance: ACETAMINOPHEN
     Route: 065
  6. REMICADE [Suspect]
     Active Substance: INFLIXIMAB
     Indication: CROHN^S DISEASE
     Route: 042
     Dates: start: 201710
  7. REMICADE [Suspect]
     Active Substance: INFLIXIMAB
     Indication: CROHN^S DISEASE
     Route: 042
     Dates: start: 20171130, end: 20171130
  8. SULFATE FERREUX [Concomitant]
     Route: 065
  9. OXEZE [Concomitant]
     Active Substance: FORMOTEROL FUMARATE
     Route: 065
  10. LANSOPRAZOLE. [Concomitant]
     Active Substance: LANSOPRAZOLE
     Route: 065
  11. VIT B3 [Concomitant]
     Route: 065
  12. REMICADE [Suspect]
     Active Substance: INFLIXIMAB
     Indication: CROHN^S DISEASE
     Dosage: STRENGTH = 100 MG
     Route: 042
     Dates: start: 20160201
  13. ATORVASTATIN [Concomitant]
     Active Substance: ATORVASTATIN
     Route: 065
  14. CELECOXIB. [Concomitant]
     Active Substance: CELECOXIB
     Route: 065

REACTIONS (10)
  - Crohn^s disease [Recovering/Resolving]
  - Drug specific antibody present [Recovering/Resolving]
  - Chills [Unknown]
  - Cataract [Recovered/Resolved]
  - Vertigo [Recovered/Resolved]
  - Dizziness [Recovered/Resolved]
  - Hypoaesthesia [Unknown]
  - Arthralgia [Recovered/Resolved]
  - Gait disturbance [Unknown]
  - Arthralgia [Recovering/Resolving]

NARRATIVE: CASE EVENT DATE: 20171004
